FAERS Safety Report 11755699 (Version 1)
Quarter: 2015Q4

REPORT INFORMATION
  Report Type: Spontaneous
  Country: US (occurrence: None)
  Receive Date: 20151118
  Receipt Date: 20151118
  Transmission Date: 20160304
  Serious: Yes (Disabling, Other)
  Sender: FDA-Public Use
  Company Number: None

PATIENT
  Age: 52 Year
  Sex: Female
  Weight: 53.52 kg

DRUGS (4)
  1. MULTIHANCE [Suspect]
     Active Substance: GADOBENATE DIMEGLUMINE
     Indication: TACHYCARDIA
  2. MULTIHANCE [Suspect]
     Active Substance: GADOBENATE DIMEGLUMINE
     Indication: NUCLEAR MAGNETIC RESONANCE IMAGING
  3. MULTIHANCE [Suspect]
     Active Substance: GADOBENATE DIMEGLUMINE
     Indication: ANGIOGRAM
  4. MULTI VITAMINS [Concomitant]

REACTIONS (37)
  - Quality of life decreased [None]
  - Insomnia [None]
  - Impaired self-care [None]
  - Injection site scar [None]
  - Toxicity to various agents [None]
  - Fatigue [None]
  - Swelling face [None]
  - Haemolytic anaemia [None]
  - Disorientation [None]
  - Dysgeusia [None]
  - Visual impairment [None]
  - Paraesthesia [None]
  - Odynophagia [None]
  - Activities of daily living impaired [None]
  - Disturbance in attention [None]
  - Alopecia [None]
  - Pain [None]
  - Feeding disorder [None]
  - Hyperparathyroidism [None]
  - Eye disorder [None]
  - Breast calcifications [None]
  - Asthenia [None]
  - Vomiting [None]
  - Diarrhoea [None]
  - Headache [None]
  - Hypoaesthesia [None]
  - Contrast media reaction [None]
  - Pruritus [None]
  - Panic reaction [None]
  - Burning sensation [None]
  - Skin fibrosis [None]
  - Mental impairment [None]
  - Mobility decreased [None]
  - Erythema [None]
  - Blood pressure increased [None]
  - Weight decreased [None]
  - Dyspnoea [None]

NARRATIVE: CASE EVENT DATE: 20090116
